FAERS Safety Report 7274653-7 (Version None)
Quarter: 2011Q1

REPORT INFORMATION
  Report Type: 
  Country: None (occurrence: None)
  Receive Date: 20110204
  Receipt Date: 20110127
  Transmission Date: 20110831
  Serious: Yes (Other)
  Sender: FDA-Public Use
  Company Number: US-SANOFI-AVENTIS-2011SA006643

PATIENT
  Age: 68 Year
  Sex: Male
  Weight: 70 kg

DRUGS (12)
  1. PREDNISONE [Concomitant]
  2. ZOFRAN [Concomitant]
  3. OXYCONTIN [Concomitant]
  4. JEVTANA KIT [Suspect]
     Dosage: TOTAL DOSE 37 MG
     Route: 051
     Dates: start: 20110105, end: 20110105
  5. PRILOSEC [Concomitant]
  6. MIRALAX [Concomitant]
  7. JEVTANA KIT [Suspect]
     Indication: PROSTATE CANCER
     Dosage: TOTAL DOSE 47.8 MG
     Route: 051
     Dates: start: 20101216, end: 20101216
  8. ATIVAN [Concomitant]
  9. SUCRALFATE [Concomitant]
  10. SENNA [Concomitant]
  11. DILTIAZEM [Concomitant]
  12. MEGACE [Concomitant]

REACTIONS (2)
  - CONDITION AGGRAVATED [None]
  - INTERSTITIAL LUNG DISEASE [None]
